FAERS Safety Report 14925936 (Version 1)
Quarter: 2018Q2

REPORT INFORMATION
  Report Type: Spontaneous
  Country: BR (occurrence: BR)
  Receive Date: 20180522
  Receipt Date: 20180522
  Transmission Date: 20180711
  Serious: Yes (Other)
  Sender: FDA-Public Use
  Company Number: BR-ABBVIE-18S-020-2362556-00

PATIENT
  Age: 44 Year
  Sex: Female

DRUGS (17)
  1. AMATO [Concomitant]
     Active Substance: TOPIRAMATE
     Indication: DEPRESSION
     Route: 048
     Dates: start: 2016
  2. OVESTRION [Concomitant]
     Active Substance: ESTRIOL
     Indication: INADEQUATE LUBRICATION
     Route: 067
     Dates: start: 201803, end: 20180407
  3. OVESTRION [Concomitant]
     Active Substance: ESTRIOL
     Indication: HORMONE REPLACEMENT THERAPY
  4. ANDROGEL [Suspect]
     Active Substance: TESTOSTERONE
     Indication: MENOPAUSE
     Route: 061
     Dates: start: 201803, end: 20180407
  5. DESVE [Concomitant]
     Indication: DEPRESSION
     Route: 048
     Dates: start: 2016
  6. ANDROGEL [Suspect]
     Active Substance: TESTOSTERONE
     Indication: HORMONE REPLACEMENT THERAPY
  7. RIVOTRIL [Concomitant]
     Active Substance: CLONAZEPAM
     Indication: ANXIETY
  8. INNEOV [Concomitant]
     Indication: HAIR DISORDER
     Route: 048
     Dates: start: 2017
  9. CENTRUM MULHER [Concomitant]
     Active Substance: VITAMINS
     Indication: VITAMIN SUPPLEMENTATION
     Route: 048
     Dates: start: 201712
  10. DESVE [Concomitant]
     Indication: INSOMNIA
  11. DESVE [Concomitant]
     Indication: ANXIETY
  12. AMATO [Concomitant]
     Active Substance: TOPIRAMATE
     Indication: INSOMNIA
  13. INNEOV [Concomitant]
     Indication: VITAMIN SUPPLEMENTATION
  14. RIVOTRIL [Concomitant]
     Active Substance: CLONAZEPAM
     Indication: DEPRESSION
     Route: 048
     Dates: start: 2016
  15. RIVOTRIL [Concomitant]
     Active Substance: CLONAZEPAM
     Indication: INSOMNIA
  16. AMATO [Concomitant]
     Active Substance: TOPIRAMATE
     Indication: ANXIETY
  17. SERETIDE [Concomitant]
     Active Substance: FLUTICASONE PROPIONATE\SALMETEROL XINAFOATE
     Indication: ASTHMA
     Dosage: 1 TO 2 INHALATIONS DAILY
     Route: 055
     Dates: start: 2008

REACTIONS (3)
  - Asthmatic crisis [Unknown]
  - Product availability issue [Unknown]
  - Off label use [Unknown]

NARRATIVE: CASE EVENT DATE: 201803
